FAERS Safety Report 9217686 (Version 1)
Quarter: 2013Q2

REPORT INFORMATION
  Report Type: Spontaneous
  Country: US (occurrence: US)
  Receive Date: 20130408
  Receipt Date: 20130408
  Transmission Date: 20140414
  Serious: Yes (Hospitalization)
  Sender: FDA-Public Use
  Company Number: US-ASTRAZENECA-2013SE20863

PATIENT
  Sex: 0

DRUGS (2)
  1. PRILOSEC [Suspect]
     Route: 048
  2. PROZAC [Suspect]
     Route: 065

REACTIONS (3)
  - Gastritis [Unknown]
  - Drug dose omission [Unknown]
  - Wrong drug administered [Unknown]
